FAERS Safety Report 23783416 (Version 1)
Quarter: 2024Q2

REPORT INFORMATION
  Report Type: Spontaneous
  Country: US (occurrence: None)
  Receive Date: 20240424
  Receipt Date: 20240424
  Transmission Date: 20240716
  Serious: No
  Sender: FDA-Public Use
  Company Number: None

PATIENT
  Sex: Female

DRUGS (5)
  1. OPSUMIT [Suspect]
     Active Substance: MACITENTAN
     Indication: Pulmonary arterial hypertension
     Dosage: FREQUENCY : DAILY;?
     Route: 048
     Dates: start: 202104
  2. SODIUM CHLOR INJ [Concomitant]
  3. PUMP CADD LEGACY, [Concomitant]
  4. VELETRI SDV [Concomitant]
  5. ADEMPAS [Concomitant]

REACTIONS (1)
  - Vascular device infection [None]
